FAERS Safety Report 23384039 (Version 1)
Quarter: 2024Q1

REPORT INFORMATION
  Report Type: Spontaneous
  Country: US (occurrence: None)
  Receive Date: 20240109
  Receipt Date: 20240109
  Transmission Date: 20240410
  Serious: Yes (Hospitalization)
  Sender: FDA-Public Use
  Company Number: None

PATIENT
  Age: 76 Year
  Sex: Female
  Weight: 72.6 kg

DRUGS (1)
  1. BELATACEPT [Suspect]
     Active Substance: BELATACEPT
     Indication: Renal transplant
     Dosage: OTHER FREQUENCY : Q28 DAYS;?
     Route: 042

REACTIONS (11)
  - Encephalopathy [None]
  - Acute kidney injury [None]
  - Leukopenia [None]
  - Delirium [None]
  - Hallucination, visual [None]
  - Respiratory tract infection viral [None]
  - Meningitis [None]
  - Lacunar stroke [None]
  - Lymphoma [None]
  - Central nervous system vasculitis [None]
  - Infection [None]

NARRATIVE: CASE EVENT DATE: 20231127
